FAERS Safety Report 5700410-6 (Version None)
Quarter: 2008Q2

REPORT INFORMATION
  Report Type: 
  Country: None (occurrence: None)
  Receive Date: 20080408
  Receipt Date: 20080408
  Transmission Date: 20081010
  Serious: Yes (Disabling, Other)
  Sender: FDA-Public Use
  Company Number: None

PATIENT
  Sex: Female
  Weight: 54.4316 kg

DRUGS (4)
  1. PLIAGLIS (LIDOCAINE AND TETRACAINE) CREAM 7%/7% [Suspect]
     Indication: LASER THERAPY
     Dosage: TOPICAL
     Route: 061
     Dates: start: 20080220, end: 20080220
  2. TECHNICAL DISINFECTANTS [Suspect]
     Indication: PROPHYLAXIS
     Dosage: OTHER
     Route: 050
  3. ANAESTHETICS FOR TOPICAL USE [Concomitant]
  4. SODIUM CHLORIDE [Concomitant]

REACTIONS (3)
  - CHEMICAL BURNS OF EYE [None]
  - CONJUNCTIVITIS [None]
  - INJURY CORNEAL [None]
